FAERS Safety Report 17876959 (Version 1)
Quarter: 2020Q2

REPORT INFORMATION
  Report Type: Spontaneous
  Country: US (occurrence: US)
  Receive Date: 20200609
  Receipt Date: 20200609
  Transmission Date: 20200714
  Serious: No
  Sender: FDA-Public Use
  Company Number: US-VERTEX PHARMACEUTICALS-2020-012333

PATIENT
  Sex: Female

DRUGS (1)
  1. TRIKAFTA [Suspect]
     Active Substance: ELEXACAFTOR\IVACAFTOR\TEZACAFTOR
     Indication: CYSTIC FIBROSIS
     Dosage: 2 ORANGE (100 MG ELEXA/50 MG TEZA/75 MG IVA) IN AM AND 1 BLUE TABLET (150 MG IVACAFTOR) IN PM
     Route: 048
     Dates: start: 20191116

REACTIONS (1)
  - Fungal skin infection [Unknown]
